FAERS Safety Report 4933979-X (Version None)
Quarter: 2006Q1

REPORT INFORMATION
  Report Type: 
  Country: None (occurrence: None)
  Receive Date: 20060307
  Receipt Date: 20060302
  Transmission Date: 20060701
  Serious: Yes (Hospitalization)
  Sender: FDA-Public Use
  Company Number: US-RB-2886-2006

PATIENT
  Sex: Male

DRUGS (4)
  1. SUBOXONE [Suspect]
     Route: 060
     Dates: start: 20060220, end: 20060220
  2. LORAZEPAM [Concomitant]
     Indication: ANXIETY
     Route: 042
     Dates: start: 20060220
  3. MORPHINE [Concomitant]
     Route: 065
     Dates: start: 20060220
  4. PROMETHAZINE HCL [Concomitant]
     Route: 042
     Dates: start: 20060220

REACTIONS (2)
  - CHEST PAIN [None]
  - HEADACHE [None]
